FAERS Safety Report 24700362 (Version 1)
Quarter: 2024Q4

REPORT INFORMATION
  Report Type: Spontaneous
  Country: US (occurrence: US)
  Receive Date: 20241205
  Receipt Date: 20241205
  Transmission Date: 20250115
  Serious: Yes (Death)
  Sender: PROCTER AND GAMBLE
  Company Number: US-PROCTER+GAMBLE-PH24009076

PATIENT
  Age: 55 Year
  Sex: Male

DRUGS (12)
  1. DEXTROMETHORPHAN [Suspect]
     Active Substance: DEXTROMETHORPHAN
     Dosage: DOSE UNKNOWN: DEXTROMETHORPHAN AND CORRESPONDING METABOLITES
  2. ACETAMINOPHEN [Suspect]
     Active Substance: ACETAMINOPHEN
     Dosage: UNK
  3. CHLORPHENIRAMINE MALEATE [Suspect]
     Active Substance: CHLORPHENIRAMINE MALEATE
     Dosage: UNK
  4. FENTANYL [Suspect]
     Active Substance: FENTANYL
     Dosage: CORRESPONDING METABOLITES
  5. METHAMPHETAMINE [Suspect]
     Active Substance: METHAMPHETAMINE
     Dosage: UNK
  6. 11-NOR-9-CARBOXY-.DELTA.9-TETRAHYDROCANNABINOL [Suspect]
     Active Substance: 11-NOR-9-CARBOXY-.DELTA.9-TETRAHYDROCANNABINOL
     Dosage: UNK
  7. FENTANYL [Suspect]
     Active Substance: FENTANYL
     Dosage: UNK
  8. DEPROPIONYLFENTANYL [Suspect]
     Active Substance: DEPROPIONYLFENTANYL
     Dosage: UNK
  9. N-METHYLNORFENTANYL [Suspect]
     Active Substance: N-METHYLNORFENTANYL
     Dosage: UNK
  10. .BETA.-HYDROXYFENTANYL [Suspect]
     Active Substance: .BETA.-HYDROXYFENTANYL
     Dosage: UNK
  11. N-PHENETHYL-4-PIPERIDINONE [Suspect]
     Active Substance: N-PHENETHYL-4-PIPERIDINONE
     Dosage: UNK
  12. LEVOMETHORPHAN [Suspect]
     Active Substance: LEVOMETHORPHAN
     Dosage: DOSE: UNKNOWN, LEVOMETHORPHAN AND CORRESPONDING METABOLITES

REACTIONS (2)
  - Toxicity to various agents [Fatal]
  - Accidental overdose [Fatal]
